FAERS Safety Report 7971151-X (Version None)
Quarter: 2011Q4

REPORT INFORMATION
  Report Type: 
  Country: None (occurrence: None)
  Receive Date: 20111212
  Receipt Date: 20111202
  Transmission Date: 20120403
  Serious: Yes (Other)
  Sender: FDA-Public Use
  Company Number: US-CELGENEUS-163-C4047-11120537

PATIENT
  Sex: Male
  Weight: 77.1 kg

DRUGS (8)
  1. CC-4047 [Suspect]
     Dosage: 2 MILLIGRAM
     Route: 048
     Dates: start: 20111025, end: 20111122
  2. REVLIMID [Suspect]
     Dates: start: 20080109, end: 20080129
  3. DEXAMETHASONE [Suspect]
     Dosage: 8 MILLIGRAM
     Route: 065
     Dates: start: 20111025
  4. REVLIMID [Suspect]
     Indication: MULTIPLE MYELOMA
     Dosage: 10 MILLIGRAM
     Route: 048
     Dates: start: 20071114, end: 20071204
  5. REVLIMID [Suspect]
     Dates: start: 20071212, end: 20080101
  6. CC-4047 [Suspect]
     Indication: MULTIPLE MYELOMA
     Dosage: 4 MILLIGRAM
     Route: 048
     Dates: start: 20100527
  7. COUMADIN [Concomitant]
     Dosage: 7.5 MILLIGRAM
     Route: 048
     Dates: start: 20100527
  8. DEXAMETHASONE [Suspect]
     Indication: MULTIPLE MYELOMA
     Dosage: 40 MILLIGRAM
     Route: 065
     Dates: start: 20100527

REACTIONS (1)
  - COLON CANCER [None]
